FAERS Safety Report 4747565-8 (Version None)
Quarter: 2005Q3

REPORT INFORMATION
  Report Type: 
  Country: None (occurrence: None)
  Receive Date: 20050818
  Receipt Date: 20040901
  Transmission Date: 20060218
  Serious: No
  Sender: FDA-Public Use
  Company Number: US-BRISTOL-MYERS SQUIBB COMPANY-12689832

PATIENT
  Age: 78 Year
  Sex: Female
  Weight: 61 kg

DRUGS (2)
  1. TEQUIN [Suspect]
     Indication: CYSTITIS
     Route: 048
     Dates: start: 20040831, end: 20040901
  2. PLAVIX [Concomitant]

REACTIONS (2)
  - NAUSEA [None]
  - TREMOR [None]
